FAERS Safety Report 4684191-3 (Version None)
Quarter: 2005Q2

REPORT INFORMATION
  Report Type: 
  Country: None (occurrence: None)
  Receive Date: 20050607
  Receipt Date: 20050524
  Transmission Date: 20051028
  Serious: Yes (Hospitalization)
  Sender: FDA-Public Use
  Company Number: JP-GLAXOSMITHKLINE-B0382512A

PATIENT
  Age: 63 Year
  Sex: Male

DRUGS (8)
  1. VALTREX [Suspect]
     Indication: HERPES ZOSTER
     Route: 048
     Dates: start: 20050518, end: 20050520
  2. ALFAROL [Concomitant]
     Dosage: .25MCG PER DAY
     Route: 048
  3. SELBEX [Concomitant]
     Route: 048
  4. KALIMATE [Concomitant]
     Route: 048
  5. CALTAN [Concomitant]
     Dosage: 6TAB PER DAY
     Route: 048
  6. ADALAT [Concomitant]
     Dosage: 10MG PER DAY
     Route: 048
  7. RINDERON [Concomitant]
     Dosage: 2TAB PER DAY
     Route: 048
  8. LOXONIN [Concomitant]
     Dosage: 1TAB PER DAY
     Route: 048

REACTIONS (10)
  - ABNORMAL BEHAVIOUR [None]
  - DELIRIUM [None]
  - DYSARTHRIA [None]
  - HALLUCINATION [None]
  - HEADACHE [None]
  - HYPOAESTHESIA ORAL [None]
  - INSOMNIA [None]
  - MALAISE [None]
  - OEDEMA PERIPHERAL [None]
  - SWELLING FACE [None]
